FAERS Safety Report 5588724-4 (Version None)
Quarter: 2008Q1

REPORT INFORMATION
  Report Type: 
  Country: None (occurrence: None)
  Receive Date: 20080111
  Receipt Date: 20080103
  Transmission Date: 20080703
  Serious: Yes (Other)
  Sender: FDA-Public Use
  Company Number: B0360521A

PATIENT
  Sex: Female

DRUGS (1)
  1. PAROXETINE HYDROCHLORIDE [Suspect]
     Indication: DEPRESSION
     Route: 065
     Dates: start: 19950116

REACTIONS (11)
  - AGGRESSION [None]
  - CRYING [None]
  - DEPRESSED MOOD [None]
  - FEELING OF DESPAIR [None]
  - HYPERHIDROSIS [None]
  - ILL-DEFINED DISORDER [None]
  - LETHARGY [None]
  - NAUSEA [None]
  - TEARFULNESS [None]
  - TREMOR [None]
  - WITHDRAWAL SYNDROME [None]
